FAERS Safety Report 8347530-8 (Version None)
Quarter: 2012Q2

REPORT INFORMATION
  Report Type: 
  Country: None (occurrence: None)
  Receive Date: 20120509
  Receipt Date: 20120426
  Transmission Date: 20120825
  Serious: No
  Sender: FDA-Public Use
  Company Number: US-BAYER-2012-043812

PATIENT

DRUGS (2)
  1. ASPIRIN [Concomitant]
     Route: 048
  2. NAPROXEN SODIUM [Suspect]
     Indication: ANALGESIC THERAPY
     Route: 048

REACTIONS (1)
  - ANALGESIC THERAPY [None]
